FAERS Safety Report 4653315-6 (Version None)
Quarter: 2005Q2

REPORT INFORMATION
  Report Type: 
  Country: None (occurrence: None)
  Receive Date: 20050505
  Receipt Date: 20050428
  Transmission Date: 20051028
  Serious: Yes (Life-Threatening)
  Sender: FDA-Public Use
  Company Number: 200510844DE

PATIENT
  Age: 68 Year
  Sex: Male

DRUGS (4)
  1. ANEMET [Suspect]
     Indication: PROPHYLAXIS OF NAUSEA AND VOMITING
     Route: 042
     Dates: start: 20050309
  2. OXALIPLATIN [Concomitant]
     Indication: COLON CANCER METASTATIC
     Dates: start: 20040801
  3. FLUOROURACIL [Concomitant]
     Indication: COLON CANCER METASTATIC
     Dates: start: 20040801
  4. FOLINIC ACID [Concomitant]
     Indication: COLON CANCER METASTATIC
     Dates: start: 20040801

REACTIONS (2)
  - PETECHIAE [None]
  - THROMBOCYTOPENIA [None]
